FAERS Safety Report 24909615 (Version 1)
Quarter: 2025Q1

REPORT INFORMATION
  Report Type: Spontaneous
  Country: US (occurrence: None)
  Receive Date: 20250130
  Receipt Date: 20250130
  Transmission Date: 20250409
  Serious: Yes (Hospitalization)
  Sender: FDA-CTU
  Company Number: None

PATIENT
  Age: 16 Year
  Sex: Male

DRUGS (1)
  1. NIVESTYM [Suspect]
     Active Substance: FILGRASTIM-AAFI
     Indication: Infantile genetic agranulocytosis
     Dosage: OTHER STRENGTH : 300/0.5 UG/ML;?FREQUENCY : DAILY;?
     Route: 058
     Dates: start: 202501

REACTIONS (2)
  - Pyrexia [None]
  - Neutrophil count decreased [None]

NARRATIVE: CASE EVENT DATE: 20250101
